FAERS Safety Report 10540021 (Version 1)
Quarter: 2014Q4

REPORT INFORMATION
  Report Type: Report from Study
  Country: DE (occurrence: DE)
  Receive Date: 20141024
  Receipt Date: 20141024
  Transmission Date: 20150529
  Serious: Yes (Hospitalization)
  Sender: FDA-Public Use
  Company Number: DE-BRISTOL-MYERS SQUIBB COMPANY-21496260

PATIENT
  Age: 70 Year
  Sex: Male

DRUGS (8)
  1. CICLOSPORIN [Suspect]
     Active Substance: CYCLOSPORINE
  2. BELATACEPT [Suspect]
     Active Substance: BELATACEPT
  3. PREDNISONE. [Suspect]
     Active Substance: PREDNISONE
  4. EVEROLIMUS [Suspect]
     Active Substance: EVEROLIMUS
  5. MYCOPHENOLATE SODIUM [Suspect]
     Active Substance: MYCOPHENOLATE SODIUM
  6. SIROLIMUS. [Suspect]
     Active Substance: SIROLIMUS
  7. TACROLIMUS. [Suspect]
     Active Substance: TACROLIMUS
  8. MYCOPHENOLATE MOFETIL. [Suspect]
     Active Substance: MYCOPHENOLATE MOFETIL

REACTIONS (1)
  - Atrial flutter [Recovered/Resolved]
